FAERS Safety Report 24853317 (Version 1)
Quarter: 2025Q1

REPORT INFORMATION
  Report Type: Spontaneous
  Country: FR (occurrence: FR)
  Receive Date: 20250117
  Receipt Date: 20250117
  Transmission Date: 20250409
  Serious: Yes (Hospitalization, Disabling, Other)
  Sender: AUROBINDO
  Company Number: FR-TEVA-2023-FR-2888439

PATIENT
  Age: 44 Year
  Sex: Male
  Weight: 108 kg

DRUGS (10)
  1. RASAGILINE [Suspect]
     Active Substance: RASAGILINE
     Indication: Product used for unknown indication
     Route: 065
     Dates: start: 2013
  2. AZILECT [Suspect]
     Active Substance: RASAGILINE MESYLATE
     Indication: Product used for unknown indication
     Dosage: 1 MILLIGRAM, ONCE A DAY
     Route: 065
     Dates: start: 20130205, end: 201904
  3. NEUPRO [Suspect]
     Active Substance: ROTIGOTINE
     Indication: Product used for unknown indication
     Route: 062
     Dates: start: 20130515, end: 2016
  4. NEUPRO [Suspect]
     Active Substance: ROTIGOTINE
     Dosage: 2 MILLIGRAM, ONCE A DAY
     Route: 065
     Dates: start: 20130514
  5. NEUPRO [Suspect]
     Active Substance: ROTIGOTINE
     Dosage: 4 MILLIGRAM, ONCE A DAY
     Route: 065
     Dates: start: 2013
  6. NEUPRO [Suspect]
     Active Substance: ROTIGOTINE
     Dosage: 6 MILLIGRAM, ONCE A DAY
     Route: 065
     Dates: start: 20130830
  7. NEUPRO [Suspect]
     Active Substance: ROTIGOTINE
     Dosage: 8 MILLIGRAM, ONCE A DAY
     Route: 065
  8. NEUPRO [Suspect]
     Active Substance: ROTIGOTINE
     Dosage: 10 MILLIGRAM, ONCE A DAY
     Route: 065
     Dates: end: 20160812
  9. BENSERAZIDE HYDROCHLORIDE\LEVODOPA [Concomitant]
     Active Substance: BENSERAZIDE HYDROCHLORIDE\LEVODOPA
     Indication: Product used for unknown indication
     Route: 065
     Dates: start: 20170929
  10. BENSERAZIDE HYDROCHLORIDE\LEVODOPA [Concomitant]
     Active Substance: BENSERAZIDE HYDROCHLORIDE\LEVODOPA
     Route: 065
     Dates: start: 20180323

REACTIONS (8)
  - Parkinson^s disease [Recovering/Resolving]
  - Gaming disorder [Recovered/Resolved]
  - Obsessive-compulsive personality disorder [Recovered/Resolved]
  - Muscle spasms [Recovered/Resolved]
  - Paraesthesia [Recovering/Resolving]
  - Somnolence [Recovered/Resolved]
  - Therapy cessation [Unknown]
  - Hyperaesthesia [Unknown]

NARRATIVE: CASE EVENT DATE: 20130101
